FAERS Safety Report 5522225-4 (Version None)
Quarter: 2007Q4

REPORT INFORMATION
  Report Type: 
  Country: None (occurrence: None)
  Receive Date: 20071120
  Receipt Date: 20071106
  Transmission Date: 20080405
  Serious: Yes (Hospitalization)
  Sender: FDA-Public Use
  Company Number: CA-ELI_LILLY_AND_COMPANY-CA200709005924

PATIENT
  Sex: Female

DRUGS (8)
  1. FORTEO [Suspect]
     Indication: OSTEOPOROSIS
     Dosage: 20 UG, DAILY (1/D)
     Route: 058
     Dates: start: 20070402
  2. APO-CITALOPRAM [Concomitant]
  3. CLONAZEPAM [Concomitant]
  4. SYNTHROID [Concomitant]
  5. APO-TRIAZIDE [Concomitant]
  6. LOPRESSOR [Concomitant]
  7. MEDROXYPROGESTERONE ACETATE [Concomitant]
  8. CALTRATE + VITAMIN D [Concomitant]

REACTIONS (1)
  - NEPHROLITHIASIS [None]
